FAERS Safety Report 4363084-5 (Version None)
Quarter: 2004Q2

REPORT INFORMATION
  Report Type: 
  Country: None (occurrence: None)
  Receive Date: 20040518
  Receipt Date: 20040505
  Transmission Date: 20050107
  Serious: Yes (Hospitalization)
  Sender: FDA-Public Use
  Company Number: DE-JNJFOC-20040501099

PATIENT
  Age: 67 Year
  Sex: Female

DRUGS (8)
  1. INFLIXIMAB, RECOMBINANT- BLINDED (INFLIXIMAB, RECOMBINANT) LYOPHILIZED [Suspect]
     Indication: CACHEXIA
     Dosage: INTRAVNENOUS
     Route: 042
     Dates: start: 20040428
  2. PLACEBO (PLACEBO) LYOPHILIZED POWDER [Suspect]
     Indication: CACHEXIA
     Dosage: INTRAVENOUS
     Route: 042
     Dates: start: 20040428
  3. JODTHYROX (JODTHYROX) [Concomitant]
  4. NORVASC [Concomitant]
  5. KREON (PANCREATIN) [Concomitant]
  6. PRESOMEN (ESTROGENS CONJUGATED) [Concomitant]
  7. METFORMIN HCL [Concomitant]
  8. DRONABINOL (DRONABINOL) [Concomitant]

REACTIONS (4)
  - BLOOD ALKALINE PHOSPHATASE INCREASED [None]
  - BLOOD BILIRUBIN INCREASED [None]
  - GAMMA-GLUTAMYLTRANSFERASE INCREASED [None]
  - PROTHROMBIN TIME PROLONGED [None]
